FAERS Safety Report 7170149-1 (Version None)
Quarter: 2010Q4

REPORT INFORMATION
  Report Type: 
  Country: None (occurrence: None)
  Receive Date: 20101214
  Receipt Date: 20101214
  Transmission Date: 20110411
  Serious: Yes (Life-Threatening, Hospitalization, Other)
  Sender: FDA-Public Use
  Company Number: None

PATIENT
  Sex: Female
  Weight: 49.4421 kg

DRUGS (1)
  1. DARVOCET [Suspect]
     Indication: PAIN
     Dosage: 1 PILL 4 TO 6 HOURS DAILY

REACTIONS (7)
  - ACTIVITIES OF DAILY LIVING IMPAIRED [None]
  - CHEST PAIN [None]
  - DIZZINESS [None]
  - EDUCATIONAL PROBLEM [None]
  - NAUSEA [None]
  - VOMITING [None]
  - WEIGHT DECREASED [None]
